FAERS Safety Report 9861118 (Version 2)
Quarter: 2014Q1

REPORT INFORMATION
  Report Type: Spontaneous
  Country: None (occurrence: US)
  Receive Date: 20140202
  Receipt Date: 20140202
  Transmission Date: 20141002
  Serious: No
  Sender: FDA-Public Use
  Company Number: US-ALLERGAN-1303557US

PATIENT
  Age: 48 Year
  Sex: Female

DRUGS (23)
  1. BOTOX [Suspect]
     Indication: MIGRAINE
     Dosage: 155 UNITS, SINGLE
     Route: 030
     Dates: start: 20130226, end: 20130226
  2. BOTOX [Suspect]
  3. NEURONTIN [Concomitant]
     Indication: FIBROMYALGIA
     Dosage: 300 MG, QID
     Route: 048
  4. OXYCONTIN [Concomitant]
     Indication: ABDOMINAL MIGRAINE
     Dosage: 40 MG, TID
     Route: 048
  5. OXYCONTIN [Concomitant]
     Indication: FIBROMYALGIA
  6. OXYCONTIN [Concomitant]
     Indication: HEADACHE
  7. OXYCODONE [Concomitant]
     Indication: ABDOMINAL MIGRAINE
     Dosage: 30 MG, QID
     Route: 048
  8. OXYCODONE [Concomitant]
     Indication: FIBROMYALGIA
  9. OXYCODONE [Concomitant]
     Indication: HEADACHE
  10. NEXIUM                             /01479302/ [Concomitant]
     Indication: GASTROOESOPHAGEAL REFLUX DISEASE
     Dosage: 40 MG, QD
     Route: 048
  11. AMBIEN [Concomitant]
     Indication: SLEEP DISORDER
     Dosage: 10 MG, QHS
     Route: 048
  12. AMBIEN [Concomitant]
     Indication: INSOMNIA
  13. REMERON [Concomitant]
     Indication: INSOMNIA
     Dosage: 30 MG, QHS
     Route: 048
  14. IMITREX                            /01044801/ [Concomitant]
     Indication: MIGRAINE
     Dosage: UNK UNK, PRN
     Route: 048
  15. PHENERGAN                          /00033001/ [Concomitant]
     Indication: NAUSEA
     Dosage: UNK UNK, PRN
  16. ZANAFLEX [Concomitant]
     Indication: MUSCLE SPASMS
     Dosage: 4 MG, 1/2 TAB BID-TID
  17. DIAZEPAM [Concomitant]
     Indication: ANXIETY
     Dosage: 5 MG, QD
     Route: 048
  18. DIAZEPAM [Concomitant]
     Indication: MIGRAINE
  19. DIAZEPAM [Concomitant]
     Indication: TENSION HEADACHE
  20. RESTASIS [Concomitant]
     Indication: DRY EYE
  21. NEXIUM NASAL SPRAY NOS [Concomitant]
     Dosage: 20 MG, PRN
     Route: 045
  22. LIDODERM [Concomitant]
     Indication: SKIN DISORDER
     Dosage: UNK, PRN
     Route: 061
     Dates: start: 2012
  23. PROMETHAZINE [Concomitant]
     Indication: NAUSEA
     Dosage: 25 MG, PRN
     Route: 048

REACTIONS (10)
  - Depression [Not Recovered/Not Resolved]
  - Heart rate increased [Recovered/Resolved]
  - Chest discomfort [Recovered/Resolved]
  - Eyelid oedema [Recovering/Resolving]
  - Eye swelling [Recovering/Resolving]
  - Flushing [Unknown]
  - Sinusitis [Recovered/Resolved]
  - Fatigue [Unknown]
  - Dry mouth [Unknown]
  - Pyrexia [Recovered/Resolved]
